FAERS Safety Report 10697223 (Version 2)
Quarter: 2015Q1

REPORT INFORMATION
  Report Type: Report from Study
  Country: US (occurrence: US)
  Receive Date: 20150108
  Receipt Date: 20150205
  Transmission Date: 20150721
  Serious: Yes (Hospitalization)
  Sender: FDA-Public Use
  Company Number: US-CELGENE-USA-2014126219

PATIENT
  Age: 52 Year
  Sex: Male
  Weight: 91.7 kg

DRUGS (2)
  1. SEROQUEL [Concomitant]
     Active Substance: QUETIAPINE FUMARATE
     Indication: PRODUCT USED FOR UNKNOWN INDICATION
     Route: 065
  2. CC-10004 [Suspect]
     Active Substance: APREMILAST
     Indication: DRUG LEVEL
     Dosage: 75 MILLIGRAM
     Route: 048
     Dates: start: 20141120, end: 20141213

REACTIONS (1)
  - Suicide attempt [Recovered/Resolved with Sequelae]

NARRATIVE: CASE EVENT DATE: 20141222
